FAERS Safety Report 4896642-X (Version None)
Quarter: 2006Q1

REPORT INFORMATION
  Report Type: 
  Country: None (occurrence: None)
  Receive Date: 20060131
  Receipt Date: 20051213
  Transmission Date: 20060701
  Serious: Yes (Death)
  Sender: FDA-Public Use
  Company Number: JP-SOLVAY-00305004177

PATIENT
  Age: 205 Month
  Sex: Male
  Weight: 65 kg

DRUGS (14)
  1. ROHYPNOL [Concomitant]
     Indication: INSOMNIA
     Dosage: DAILY DOSE: 2 MILLIGRAM(S)
     Route: 048
     Dates: start: 20040412, end: 20040422
  2. ROHYPNOL [Concomitant]
     Dosage: DAILY DOSE: 2 MILLIGRAM(S)
     Route: 048
     Dates: start: 20041217, end: 20050623
  3. ROHYPNOL [Concomitant]
     Dosage: DAILY DOSE: 4 MILLIGRAM(S)
     Route: 048
     Dates: start: 20050624, end: 20051208
  4. LUVOX [Suspect]
     Indication: DEPRESSION
     Dosage: DAILY DOSE: 50 MILLIGRAM(S)
     Route: 048
     Dates: start: 20050805, end: 20051208
  5. AKINETON [Concomitant]
     Indication: PARKINSONISM
     Dosage: DAILY DOSE: 3 MILLIGRAM(S)
     Route: 048
     Dates: start: 20041217, end: 20050217
  6. AKINETON [Concomitant]
     Dosage: DAILY DOSE: 2 MILLIGRAM(S)
     Route: 048
     Dates: start: 20050218, end: 20050623
  7. AKINETON [Concomitant]
     Dosage: DAILY DOSE: 3 MILLIGRAM(S)
     Route: 048
     Dates: start: 20050624, end: 20051208
  8. DOGMATYL [Suspect]
     Indication: DEPRESSION
     Dosage: DAILY DOSE: 150 MILLIGRAM(S)
     Route: 048
     Dates: start: 20040430, end: 20040507
  9. DOGMATYL [Suspect]
     Dosage: DAILY DOSE: 150 MILLIGRAM(S)
     Route: 048
     Dates: start: 20051007, end: 20051208
  10. RISPERDAL [Concomitant]
     Indication: SCHIZOPHRENIA
     Dosage: DAILY DOSE: 2 MILLIGRAM(S)
     Route: 048
     Dates: start: 20041217, end: 20041223
  11. RISPERDAL [Concomitant]
     Dosage: DAILY DOSE: 4 MILLIGRAM(S)
     Route: 048
     Dates: start: 20041224, end: 20050106
  12. RISPERDAL [Concomitant]
     Dosage: DAILY DOSE: 3 MILLIGRAM(S)
     Route: 048
     Dates: start: 20050107, end: 20051208
  13. RIVOTRIL [Concomitant]
     Indication: ANXIETY
     Dosage: DAILY DOSE: 1.5 MILLIGRAM(S)
     Route: 048
     Dates: start: 20050204, end: 20050217
  14. RIVOTRIL [Concomitant]
     Dosage: DAILY DOSE: 2 MILLIGRAM(S)
     Route: 048
     Dates: start: 20050218, end: 20051208

REACTIONS (1)
  - COMPLETED SUICIDE [None]
